FAERS Safety Report 9381778 (Version 2)
Quarter: 2013Q4

REPORT INFORMATION
  Report Type: Spontaneous
  Country: US (occurrence: US)
  Receive Date: 20130703
  Receipt Date: 20131204
  Transmission Date: 20140711
  Serious: Yes (Other)
  Sender: FDA-Public Use
  Company Number: US-PAR PHARMACEUTICAL, INC-2013SCPR006006

PATIENT
  Sex: 0

DRUGS (1)
  1. FENTANYL CITRATE [Suspect]
     Indication: PAIN
     Dosage: UNK UNK, UNKNOWN
     Route: 065

REACTIONS (2)
  - Myocardial infarction [Unknown]
  - Blood pressure increased [Unknown]
